FAERS Safety Report 7319662-4 (Version None)
Quarter: 2011Q1

REPORT INFORMATION
  Report Type: 
  Country: None (occurrence: None)
  Receive Date: 20110228
  Receipt Date: 20100621
  Transmission Date: 20110831
  Serious: No
  Sender: FDA-Public Use
  Company Number: A0869335A

PATIENT
  Age: 19 Year
  Sex: Female

DRUGS (3)
  1. LAMOTRIGINE [Suspect]
     Route: 065
  2. KEPPRA [Suspect]
     Route: 065
  3. LAMICTAL [Suspect]
     Dosage: 300MG TWICE PER DAY
     Route: 065

REACTIONS (3)
  - ADVERSE EVENT [None]
  - PRODUCT SUBSTITUTION ISSUE [None]
  - MOOD SWINGS [None]
